FAERS Safety Report 25925529 (Version 1)
Quarter: 2025Q4

REPORT INFORMATION
  Report Type: Spontaneous
  Country: US (occurrence: US)
  Receive Date: 20251015
  Receipt Date: 20251015
  Transmission Date: 20260117
  Serious: Yes (Hospitalization)
  Sender: SANOFI AVENTIS
  Company Number: US-SA-2025SA304772

PATIENT
  Age: 28 Year
  Sex: Female
  Weight: 159.09 kg

DRUGS (2)
  1. DUPIXENT [Suspect]
     Active Substance: DUPILUMAB
     Indication: Mast cell activation syndrome
     Dosage: 300 MG, QOW
     Route: 058
  2. GLEEVEC [Concomitant]
     Active Substance: IMATINIB MESYLATE

REACTIONS (2)
  - Illness [Unknown]
  - Product use in unapproved indication [Unknown]
